FAERS Safety Report 20547563 (Version 1)
Quarter: 2022Q1

REPORT INFORMATION
  Report Type: Spontaneous
  Country: US (occurrence: US)
  Receive Date: 20220303
  Receipt Date: 20220303
  Transmission Date: 20220424
  Serious: No
  Sender: FDA-Public Use
  Company Number: US-GLENMARK PHARMACEUTICALS-2022GMK069738

PATIENT

DRUGS (6)
  1. MUPIROCIN [Suspect]
     Active Substance: MUPIROCIN
     Indication: Prophylaxis
     Dosage: UNK UNK, BID
     Route: 045
     Dates: start: 20220106
  2. MUPIROCIN [Suspect]
     Active Substance: MUPIROCIN
     Indication: Preoperative care
  3. MUPIROCIN [Suspect]
     Active Substance: MUPIROCIN
     Indication: Staphylococcal infection
  4. DICYCLOMINE HYDROCHLORIDE [Concomitant]
     Active Substance: DICYCLOMINE HYDROCHLORIDE
     Indication: Irritable bowel syndrome
     Dosage: UNK UNK, TID
     Route: 048
  5. COLESTIPOL HYDROCHLORIDE [Concomitant]
     Active Substance: COLESTIPOL HYDROCHLORIDE
     Indication: Bile output abnormal
     Dosage: 2 DOSAGE FORM, OD
     Route: 048
     Dates: start: 2021
  6. BEANO [Concomitant]
     Active Substance: ASPERGILLUS NIGER .ALPHA.-GALACTOSIDASE
     Indication: Irritable bowel syndrome
     Dosage: UNK, PRN (AS NEEDED)
     Route: 048

REACTIONS (3)
  - Incorrect route of product administration [Unknown]
  - Product use in unapproved indication [Unknown]
  - No adverse event [Unknown]

NARRATIVE: CASE EVENT DATE: 20220106
